FAERS Safety Report 7732448-1 (Version None)
Quarter: 2011Q3

REPORT INFORMATION
  Report Type: 
  Country: None (occurrence: None)
  Receive Date: 20110906
  Receipt Date: 20110826
  Transmission Date: 20111222
  Serious: Yes (Other)
  Sender: FDA-Public Use
  Company Number: CA-ASTRAZENECA-2011SE52042

PATIENT
  Age: 57 Year
  Sex: Female

DRUGS (8)
  1. CRESTOR [Suspect]
     Indication: BLOOD CHOLESTEROL ABNORMAL
     Route: 048
     Dates: start: 19970101
  2. DOCUSATE [Concomitant]
     Indication: FAECES HARD
     Route: 048
  3. OXYCODONE HCL [Concomitant]
     Indication: PAIN
     Route: 048
     Dates: start: 19990101
  4. PANTOPRAZOLE [Concomitant]
     Indication: GASTRIC DISORDER
     Route: 048
  5. LEVOTHYROXINE SODIUM [Concomitant]
     Indication: THYROID DISORDER
     Route: 048
  6. RAMIPRIL [Concomitant]
     Indication: BLOOD PRESSURE ABNORMAL
     Route: 048
  7. OXYCODONE AND ACETAMINOPHEN [Concomitant]
     Indication: PAIN
     Route: 048
  8. RISEDRONATE SODIUM [Concomitant]
     Indication: ARTHRITIS
     Route: 048

REACTIONS (10)
  - DIPLOPIA [None]
  - ARTHRITIS [None]
  - HAEMATOCHEZIA [None]
  - OSTEOPENIA [None]
  - INSOMNIA [None]
  - DEPRESSION [None]
  - NEPHROLITHIASIS [None]
  - MIGRAINE [None]
  - FIBROMYALGIA [None]
  - IRRITABLE BOWEL SYNDROME [None]
